FAERS Safety Report 8516575-7 (Version None)
Quarter: 2012Q3

REPORT INFORMATION
  Report Type: 
  Country: None (occurrence: None)
  Receive Date: 20120711
  Receipt Date: 20120711
  Transmission Date: 20120928
  Serious: Yes (Other)
  Sender: FDA-Public Use
  Company Number: None

PATIENT
  Age: 43 Year
  Sex: Female
  Weight: 60.3284 kg

DRUGS (1)
  1. DULCOLAX [Suspect]
     Indication: CONSTIPATION
     Dosage: 2 TABLETS, PER DIRECTIONS ONCE PO
     Route: 048
     Dates: start: 20120708, end: 20120708

REACTIONS (7)
  - DIARRHOEA [None]
  - VOMITING [None]
  - RETCHING [None]
  - ASTHENIA [None]
  - HYPERHIDROSIS [None]
  - ABDOMINAL PAIN [None]
  - MALAISE [None]
